FAERS Safety Report 24174189 (Version 3)
Quarter: 2024Q3

REPORT INFORMATION
  Report Type: Spontaneous
  Country: US (occurrence: US)
  Receive Date: 20240805
  Receipt Date: 20240821
  Transmission Date: 20241017
  Serious: No
  Sender: SANOFI AVENTIS
  Company Number: US-SANOFI-02151629

PATIENT
  Age: 60 Year
  Sex: Female

DRUGS (1)
  1. ADMELOG [Suspect]
     Active Substance: INSULIN LISPRO
     Indication: Type 2 diabetes mellitus
     Dosage: 35 IU, TID

REACTIONS (6)
  - Abdominal pain upper [Unknown]
  - Skin discolouration [Unknown]
  - Injection site pain [Unknown]
  - Blood glucose abnormal [Unknown]
  - Off label use [Unknown]
  - Device mechanical issue [Unknown]
